FAERS Safety Report 9351899 (Version 2)
Quarter: 2013Q3

REPORT INFORMATION
  Report Type: Spontaneous
  Country: US (occurrence: US)
  Receive Date: 20130617
  Receipt Date: 20130909
  Transmission Date: 20140515
  Serious: Yes (Death, Hospitalization)
  Sender: FDA-Public Use
  Company Number: US-GLAXOSMITHKLINE-A1027154A

PATIENT
  Sex: Male
  Weight: 60.5 kg

DRUGS (11)
  1. VOTRIENT [Suspect]
     Indication: RENAL CANCER
     Dosage: 800MG PER DAY
     Route: 048
     Dates: start: 20130530
  2. PANTOPRAZOLE [Concomitant]
     Dosage: 20MG UNKNOWN
     Route: 065
  3. DEXAMETHASON [Concomitant]
     Dosage: 4MG UNKNOWN
     Route: 065
  4. LORAZEPAM [Concomitant]
     Dosage: 1MG UNKNOWN
     Route: 065
  5. MORPHINE SULFATE [Concomitant]
     Dosage: 15MG UNKNOWN
     Route: 065
  6. SENNA [Concomitant]
     Route: 065
  7. ZOFRAN [Concomitant]
     Dosage: 4MG UNKNOWN
     Route: 065
  8. MIRALAX [Concomitant]
     Route: 065
  9. OXYCONTIN [Concomitant]
     Dosage: 10MG UNKNOWN
     Route: 065
  10. HALOPERIDOL [Concomitant]
  11. MIRALAX [Concomitant]

REACTIONS (8)
  - Death [Fatal]
  - Lung disorder [Unknown]
  - Hypotension [Unknown]
  - Dizziness [Unknown]
  - Weight decreased [Unknown]
  - Fatigue [Unknown]
  - Cough [Unknown]
  - Vomiting [Unknown]
